FAERS Safety Report 6944498-3 (Version None)
Quarter: 2010Q3

REPORT INFORMATION
  Report Type: 
  Country: None (occurrence: None)
  Receive Date: 20100827
  Receipt Date: 20100819
  Transmission Date: 20110219
  Serious: Yes (Other)
  Sender: FDA-Public Use
  Company Number: PT-PFIZER INC-2010105015

PATIENT
  Age: 70 Year
  Sex: Male

DRUGS (3)
  1. CARDURA [Suspect]
     Indication: PROSTATOMEGALY
     Dosage: 4 MG, 1X/DAY
     Route: 048
     Dates: start: 20100721
  2. RAMIPRIL [Concomitant]
     Indication: HYPERTENSION
     Dosage: 10 MG, 1X/DAY
     Route: 048
  3. SIMVASTATIN [Concomitant]
     Indication: HYPERCHOLESTEROLAEMIA
     Dosage: 20 MG, 1X/DAY

REACTIONS (1)
  - VISUAL ACUITY REDUCED [None]
